FAERS Safety Report 7346075-1 (Version None)
Quarter: 2011Q1

REPORT INFORMATION
  Report Type: 
  Country: None (occurrence: None)
  Receive Date: 20110301
  Receipt Date: 20110224
  Transmission Date: 20110831
  Serious: Yes (Other)
  Sender: FDA-Public Use
  Company Number: WAES 1008FRA00018

PATIENT
  Age: 54 Year
  Sex: Male

DRUGS (14)
  1. RIFAMPIN [Suspect]
     Indication: TUBERCULOSIS
     Dosage: 600 MG/DAILY
     Route: 048
     Dates: start: 20100522, end: 20100810
  2. CIPROFLOXACIN [Concomitant]
  3. OMEPRAZOLE [Concomitant]
  4. LAMIVUDINE [Suspect]
     Indication: HIV INFECTION
     Dosage: 300 MG/DAILY
     Route: 048
     Dates: start: 20100630
  5. ISENTRESS [Suspect]
     Indication: HIV INFECTION
     Dosage: 800 MG/DAILY
     Route: 048
     Dates: start: 20100530, end: 20100831
  6. PYRAZINAMIDE [Concomitant]
  7. TENOFOVIR [Suspect]
     Indication: HIV INFECTION
     Dosage: 300 MG/DAILY
     Route: 048
     Dates: start: 20100530
  8. FOLINIC ACID [Concomitant]
  9. ACYCLOVIR [Concomitant]
  10. IVERMECTIN [Concomitant]
  11. ISONIAZID [Suspect]
     Indication: TUBERCULOSIS
     Dosage: 400 MG/DAILY
     Route: 048
     Dates: start: 20100522, end: 20100810
  12. AZITHROMYCIN [Concomitant]
  13. PYRIDOXINE [Concomitant]
  14. SULFAMETHOXAZOLE AND TRIMETHOPRIM [Concomitant]

REACTIONS (6)
  - NEUTROPENIA [None]
  - CONDITION AGGRAVATED [None]
  - MYOCARDIAL INFARCTION [None]
  - CONCOMITANT DISEASE AGGRAVATED [None]
  - LEUKOPENIA [None]
  - DRUG ERUPTION [None]
